FAERS Safety Report 18812695 (Version 6)
Quarter: 2023Q2

REPORT INFORMATION
  Report Type: Spontaneous
  Country: SI (occurrence: None)
  Receive Date: 20210131
  Receipt Date: 20230515
  Transmission Date: 20230721
  Serious: Yes (Other)
  Sender: FDA-Public Use
  Company Number: SI-ROCHE-2759373

PATIENT
  Sex: Male

DRUGS (10)
  1. HEMLIBRA [Suspect]
     Active Substance: EMICIZUMAB-KXWH
     Indication: Factor VIII deficiency
     Dosage: DATE OF LAST DOSE: 15/JAN/2021
     Route: 058
     Dates: start: 202002
  2. ASPIRIN [Concomitant]
     Active Substance: ASPIRIN
  3. TICAGRELOR [Concomitant]
     Active Substance: TICAGRELOR
  4. PANTOPRAZOLE [Concomitant]
     Active Substance: PANTOPRAZOLE
  5. CLOPIDOGREL [Concomitant]
     Active Substance: CLOPIDOGREL BISULFATE
  6. ROSUVASTATIN [Concomitant]
     Active Substance: ROSUVASTATIN
  7. PERINDOPRIL [Concomitant]
     Active Substance: PERINDOPRIL
  8. BISOPROLOL [Concomitant]
     Active Substance: BISOPROLOL
  9. ELOCTA [Concomitant]
     Active Substance: EFMOROCTOCOG ALFA
  10. ELOCTA [Concomitant]
     Active Substance: EFMOROCTOCOG ALFA

REACTIONS (6)
  - Acute myocardial infarction [Recovered/Resolved]
  - Haemorrhage [Unknown]
  - Chest pain [Unknown]
  - Haematuria [Recovered/Resolved]
  - Haemophilic arthropathy [Unknown]
  - Campylobacter gastroenteritis [Unknown]

NARRATIVE: CASE EVENT DATE: 20210127
